FAERS Safety Report 13784882 (Version 1)
Quarter: 2017Q3

REPORT INFORMATION
  Report Type: Spontaneous
  Country: PA (occurrence: PA)
  Receive Date: 20170725
  Receipt Date: 20170725
  Transmission Date: 20171127
  Serious: Yes (Other)
  Sender: FDA-Public Use
  Company Number: PA-AMGEN-PANSP2017111662

PATIENT
  Age: 12 Year

DRUGS (1)
  1. ENBREL [Suspect]
     Active Substance: ETANERCEPT
     Indication: PSORIASIS
     Dosage: 50 MG, WEEKLY
     Route: 065

REACTIONS (3)
  - Dizziness [Unknown]
  - Balance disorder [Unknown]
  - Facial paralysis [Unknown]

NARRATIVE: CASE EVENT DATE: 201702
